FAERS Safety Report 15494229 (Version 1)
Quarter: 2018Q4

REPORT INFORMATION
  Report Type: Spontaneous
  Country: CN (occurrence: CN)
  Receive Date: 20181012
  Receipt Date: 20181012
  Transmission Date: 20190205
  Serious: Yes (Hospitalization)
  Sender: FDA-Public Use
  Company Number: CN-PFIZER INC-2018406757

PATIENT
  Age: 58 Year
  Sex: Male
  Weight: 54 kg

DRUGS (6)
  1. SODIUM CHLORIDE. [Concomitant]
     Active Substance: SODIUM CHLORIDE
     Dosage: 20 ML, 1X/DAY
     Route: 042
     Dates: start: 20180801, end: 20180801
  2. SODIUM CHLORIDE. [Concomitant]
     Active Substance: SODIUM CHLORIDE
     Dosage: 140 ML, ONCE EVERY FIVE DAYS
     Route: 042
     Dates: start: 20180801, end: 20180803
  3. SODIUM CHLORIDE. [Concomitant]
     Active Substance: SODIUM CHLORIDE
     Dosage: 250 ML, (ONCE EVERY SEVEN DAYS, D1, 8, 15 FOR Q4W)
     Route: 041
     Dates: start: 20180801, end: 20180801
  4. FLUOROURACIL. [Suspect]
     Active Substance: FLUOROURACIL
     Indication: RECTAL CANCER METASTATIC
     Dosage: 20 ML, 1X/DAY
     Route: 042
     Dates: start: 20180801, end: 20180806
  5. CAMPTO [Suspect]
     Active Substance: IRINOTECAN
     Indication: RECTAL CANCER METASTATIC
     Dosage: 120 MG, (ONCE EVERY SEVEN DAYS, D1, 8, 15 FOR Q4W)
     Route: 041
     Dates: start: 20180801, end: 20180801
  6. FLUOROURACIL. [Suspect]
     Active Substance: FLUOROURACIL
     Dosage: 100 ML, MAINTAIN 120 HOURS
     Route: 042
     Dates: start: 20180806, end: 20180810

REACTIONS (1)
  - Mouth ulceration [Recovering/Resolving]

NARRATIVE: CASE EVENT DATE: 20180806
